FAERS Safety Report 10388273 (Version 8)
Quarter: 2015Q3

REPORT INFORMATION
  Report Type: Report from Study
  Country: US (occurrence: US)
  Receive Date: 20140815
  Receipt Date: 20150811
  Transmission Date: 20151125
  Serious: Yes (Hospitalization)
  Sender: FDA-Public Use
  Company Number: US-ACTELION-A-US2014-103414

PATIENT
  Age: 55 Year
  Sex: Female

DRUGS (4)
  1. VELETRI [Suspect]
     Active Substance: EPOPROSTENOL
     Indication: PULMONARY HYPERTENSION
     Dosage: 23.98 NG/KG, PER MIN
     Route: 042
     Dates: start: 20120209
  2. VELETRI [Suspect]
     Active Substance: EPOPROSTENOL
     Dosage: 31.89 NG/KG, PER MIN
     Route: 041
     Dates: start: 20120213
  3. OXYGEN. [Concomitant]
     Active Substance: OXYGEN
  4. LETAIRIS [Concomitant]
     Active Substance: AMBRISENTAN

REACTIONS (23)
  - Anaemia [Unknown]
  - Red blood cell count decreased [Unknown]
  - Biopsy liver [Unknown]
  - Vascular cauterisation [Unknown]
  - Oedema [Unknown]
  - Oxygen saturation decreased [Unknown]
  - Splenic artery thrombosis [Unknown]
  - Spleen disorder [Unknown]
  - Clostridium difficile infection [Unknown]
  - Haematocrit decreased [Unknown]
  - Transfusion [Unknown]
  - Blood potassium decreased [Unknown]
  - Dyspnoea [Unknown]
  - Exercise tolerance decreased [Unknown]
  - Ascites [Unknown]
  - Haemoglobin decreased [Unknown]
  - Heart rate increased [Unknown]
  - Weight decreased [Unknown]
  - Haemolytic anaemia [Unknown]
  - Hypotension [Unknown]
  - VIIth nerve paralysis [Unknown]
  - Tachycardia [Unknown]
  - Dizziness [Unknown]

NARRATIVE: CASE EVENT DATE: 20150317
